FAERS Safety Report 24910519 (Version 2)
Quarter: 2025Q1

REPORT INFORMATION
  Report Type: Spontaneous
  Country: US (occurrence: US)
  Receive Date: 20250131
  Receipt Date: 20250204
  Transmission Date: 20250408
  Serious: Yes (Other)
  Sender: PFIZER
  Company Number: US-PFIZER INC-202500020704

PATIENT
  Age: 25 Year
  Sex: Female

DRUGS (6)
  1. DEPO-PROVERA [Suspect]
     Active Substance: MEDROXYPROGESTERONE ACETATE
     Indication: Contraception
     Dates: start: 20180904
  2. DEPO-PROVERA [Suspect]
     Active Substance: MEDROXYPROGESTERONE ACETATE
     Indication: Weight increased
     Dates: start: 20190619
  3. DEPO-PROVERA [Suspect]
     Active Substance: MEDROXYPROGESTERONE ACETATE
     Dates: start: 20190911
  4. DEPO-PROVERA [Suspect]
     Active Substance: MEDROXYPROGESTERONE ACETATE
     Dates: start: 20230524
  5. DEPO-PROVERA [Suspect]
     Active Substance: MEDROXYPROGESTERONE ACETATE
     Dates: start: 20230823
  6. DEPO-PROVERA [Suspect]
     Active Substance: MEDROXYPROGESTERONE ACETATE
     Dates: start: 20231120

REACTIONS (18)
  - Thyroid cancer [Unknown]
  - Autoimmune thyroiditis [Unknown]
  - Tachycardia [Unknown]
  - Amenorrhoea [Recovered/Resolved]
  - Thyroid disorder [Unknown]
  - Neurological symptom [Unknown]
  - Brain fog [Unknown]
  - Insomnia [Unknown]
  - Cardiac disorder [Unknown]
  - Menstruation irregular [Not Recovered/Not Resolved]
  - Heavy menstrual bleeding [Unknown]
  - Dizziness [Unknown]
  - Asthenia [Unknown]
  - Monocyte count increased [Unknown]
  - Antinuclear antibody positive [Unknown]
  - Palpitations [Unknown]
  - Endometrial hyperplasia [Unknown]
  - Pain [Unknown]

NARRATIVE: CASE EVENT DATE: 20231101
